FAERS Safety Report 8480136-9 (Version None)
Quarter: 2012Q2

REPORT INFORMATION
  Report Type: 
  Country: None (occurrence: None)
  Receive Date: 20120629
  Receipt Date: 20120627
  Transmission Date: 20120825
  Serious: Yes (Death, Other)
  Sender: FDA-Public Use
  Company Number: BR-ROCHE-1073023

PATIENT
  Age: 15 Year
  Sex: Female

DRUGS (3)
  1. MABTHERA [Suspect]
     Indication: RENAL FAILURE CHRONIC
  2. MABTHERA [Suspect]
     Indication: SYSTEMIC LUPUS ERYTHEMATOSUS
  3. MABTHERA [Suspect]
     Indication: NEUROPSYCHIATRIC LUPUS

REACTIONS (3)
  - THROMBOSIS [None]
  - POOR VENOUS ACCESS [None]
  - FALL [None]
